FAERS Safety Report 7078521-5 (Version None)
Quarter: 2010Q4

REPORT INFORMATION
  Report Type: 
  Country: None (occurrence: None)
  Receive Date: 20101102
  Receipt Date: 20101020
  Transmission Date: 20110411
  Serious: Yes (Death)
  Sender: FDA-Public Use
  Company Number: US-AMGEN-USASP2010001003

PATIENT

DRUGS (1)
  1. NPLATE [Suspect]
     Indication: RECTAL CANCER METASTATIC
     Dates: start: 20100205, end: 20100628

REACTIONS (1)
  - MALIGNANT NEOPLASM PROGRESSION [None]
